FAERS Safety Report 22538792 (Version 4)
Quarter: 2024Q1

REPORT INFORMATION
  Report Type: Spontaneous
  Country: PT (occurrence: None)
  Receive Date: 20230609
  Receipt Date: 20240213
  Transmission Date: 20240410
  Serious: Yes (Life-Threatening, Hospitalization)
  Sender: FDA-Public Use
  Company Number: 2023A129160

PATIENT
  Age: 51 Year
  Sex: Male
  Weight: 80 kg

DRUGS (10)
  1. TICAGRELOR [Suspect]
     Active Substance: TICAGRELOR
     Indication: Coronary angioplasty
     Dosage: 180 MG LOADING DOSE, FOLLOWED BY 1 CP 90 MG
     Route: 048
     Dates: start: 20230506, end: 20230507
  2. TICAGRELOR [Suspect]
     Active Substance: TICAGRELOR
     Indication: Acute myocardial infarction
     Dosage: 180 MG LOADING DOSE, FOLLOWED BY 1 CP 90 MG
     Route: 048
     Dates: start: 20230506, end: 20230507
  3. ASPIRIN DL-LYSINE [Suspect]
     Active Substance: ASPIRIN DL-LYSINE
     Indication: Acute myocardial infarction
     Dosage: 300MG LOADING DOSE, FOLLOWED BY 100 MG 1X/DAY
     Route: 048
     Dates: start: 20230506, end: 20230507
  4. HEPARIN SODIUM [Suspect]
     Active Substance: HEPARIN SODIUM
     Indication: Coronary angioplasty
     Dosage: 5000 ARB UNITS
     Route: 042
     Dates: start: 20230506, end: 20230506
  5. INTEGRILIN [Suspect]
     Active Substance: EPTIFIBATIDE
     Indication: Acute myocardial infarction
     Dosage: 75 MG IN 100 ML INFUSION, ?. THE SPEED OF INFUSION WAS 13 ML/H
     Route: 042
     Dates: start: 20230506, end: 20230506
  6. FENTANYL [Concomitant]
     Active Substance: FENTANYL\FENTANYL CITRATE
     Indication: Product used for unknown indication
     Dates: start: 20230506
  7. PROPOFOL [Concomitant]
     Active Substance: PROPOFOL
     Indication: Product used for unknown indication
     Dates: start: 20230506
  8. ROSUVASTATIN [Concomitant]
     Active Substance: ROSUVASTATIN
     Indication: Product used for unknown indication
  9. AMOXICILLIN\CLAVULANIC ACID [Concomitant]
     Active Substance: AMOXICILLIN\CLAVULANIC ACID
     Indication: Pneumonia aspiration
     Dates: start: 20230506
  10. RAMIPRIL [Concomitant]
     Active Substance: RAMIPRIL

REACTIONS (2)
  - Haemorrhagic stroke [Not Recovered/Not Resolved]
  - Haemorrhage intracranial [Not Recovered/Not Resolved]

NARRATIVE: CASE EVENT DATE: 20230507
